FAERS Safety Report 5684871-7 (Version None)
Quarter: 2008Q1

REPORT INFORMATION
  Report Type: 
  Country: None (occurrence: None)
  Receive Date: 20080328
  Receipt Date: 19950726
  Transmission Date: 20080703
  Serious: Yes (Death)
  Sender: FDA-Public Use
  Company Number: US-ROCHE-49589

PATIENT
  Age: 53 Year
  Sex: Female
  Weight: 52.3 kg

DRUGS (3)
  1. ACCUTANE [Suspect]
     Indication: PARAGANGLION NEOPLASM
     Route: 048
     Dates: start: 19940901, end: 19950201
  2. PREMARIN [Concomitant]
     Route: 048
  3. MORPHINE [Concomitant]
     Route: 048

REACTIONS (3)
  - DISEASE PROGRESSION [None]
  - DYSPHAGIA [None]
  - LIP DRY [None]
